FAERS Safety Report 5945582-3 (Version None)
Quarter: 2008Q4

REPORT INFORMATION
  Report Type: 
  Country: None (occurrence: None)
  Receive Date: 20081107
  Receipt Date: 20081028
  Transmission Date: 20090506
  Serious: Yes (Other)
  Sender: FDA-Public Use
  Company Number: JP-PFIZER INC-2008091266

PATIENT
  Age: 68 Year
  Sex: Male

DRUGS (6)
  1. CARDENALIN [Suspect]
     Indication: HYPERTENSION
     Dosage: TEXT:2 MG DAILY
     Route: 048
     Dates: start: 20070113
  2. AMLODIPINE BESYLATE [Concomitant]
     Route: 048
     Dates: start: 20070113
  3. MIGLITOL [Concomitant]
     Route: 048
     Dates: start: 20070113, end: 20070410
  4. TIZANIDINE HYDROCHLORIDE [Concomitant]
     Route: 048
     Dates: start: 20070113
  5. CANDESARTAN CILEXETIL [Concomitant]
     Route: 048
     Dates: start: 20081003
  6. MITIGLINIDE [Concomitant]
     Route: 048
     Dates: start: 20080708

REACTIONS (1)
  - DELIRIUM [None]
